FAERS Safety Report 15484949 (Version 1)
Quarter: 2018Q4

REPORT INFORMATION
  Report Type: Spontaneous
  Country: US (occurrence: US)
  Receive Date: 20181010
  Receipt Date: 20181010
  Transmission Date: 20190205
  Serious: No
  Sender: FDA-Public Use
  Company Number: US-ROCHE-2140110

PATIENT
  Sex: Female

DRUGS (5)
  1. ESBRIET [Suspect]
     Active Substance: PIRFENIDONE
     Indication: INTERSTITIAL LUNG DISEASE
     Dosage: 1 TABLET: ONGOING: UNKNOWN
     Route: 048
  2. HYDROCHLOROTHIAZID [Concomitant]
     Active Substance: HYDROCHLOROTHIAZIDE
     Route: 065
  3. ESBRIET [Suspect]
     Active Substance: PIRFENIDONE
     Route: 048
     Dates: start: 20180212
  4. TYLENOL [Concomitant]
     Active Substance: ACETAMINOPHEN
     Route: 065
  5. BENADRYL [Concomitant]
     Active Substance: DIPHENHYDRAMINE HYDROCHLORIDE
     Route: 065

REACTIONS (5)
  - Headache [Not Recovered/Not Resolved]
  - Dizziness [Not Recovered/Not Resolved]
  - Dizziness [Recovered/Resolved]
  - Fall [Unknown]
  - Headache [Unknown]
